FAERS Safety Report 9133930 (Version 1)
Quarter: 2013Q1

REPORT INFORMATION
  Report Type: Spontaneous
  Country: US (occurrence: US)
  Receive Date: 20130119
  Receipt Date: 20130119
  Transmission Date: 20140127
  Serious: No
  Sender: FDA-Public Use
  Company Number: US-ALLERGAN-1200725US

PATIENT
  Age: 45 Year
  Sex: Female
  Weight: 72.56 kg

DRUGS (8)
  1. BOTOX? [Suspect]
     Indication: MIGRAINE
     Dosage: 125 UNITS, SINGLE
     Route: 030
     Dates: start: 20110525, end: 20110525
  2. BOTOX? [Suspect]
     Dosage: 125 UNITS, SINGLE
     Route: 030
     Dates: start: 20040504, end: 20040504
  3. SUMATRIPTAN [Concomitant]
     Indication: MIGRAINE
     Dosage: PRN
     Route: 065
     Dates: start: 2000
  4. AMITRIPTYLINE [Concomitant]
     Indication: MIGRAINE
     Dosage: 1 DF, QD
     Route: 065
     Dates: start: 201103, end: 201103
  5. NAMEDIA [Concomitant]
     Indication: MIGRAINE
     Dosage: 10 MG, BID
     Route: 065
     Dates: start: 200510
  6. SKELAXIN [Concomitant]
     Indication: MIGRAINE
     Dosage: 800 MG, QID PRN
     Route: 065
     Dates: start: 201106
  7. AVAPRO [Concomitant]
     Indication: AORTIC ANEURYSM
     Dosage: 300 MG, QD
     Route: 065
  8. ATENOLOL [Concomitant]
     Indication: MARFAN^S SYNDROME
     Dosage: 25 MG, QD
     Route: 065

REACTIONS (2)
  - Eyelid ptosis [Not Recovered/Not Resolved]
  - Drug ineffective [Unknown]
